FAERS Safety Report 6711096-6 (Version None)
Quarter: 2010Q2

REPORT INFORMATION
  Report Type: 
  Country: None (occurrence: None)
  Receive Date: 20100505
  Receipt Date: 20100209
  Transmission Date: 20101027
  Serious: No
  Sender: FDA-Public Use
  Company Number: US-KINGPHARMUSA00001-K201000163

PATIENT
  Sex: Male
  Weight: 79.365 kg

DRUGS (1)
  1. AVINZA [Suspect]
     Indication: PROCEDURAL PAIN
     Dosage: 90 MG, QD
     Route: 048
     Dates: start: 20100101

REACTIONS (6)
  - ANXIETY [None]
  - ARTHRALGIA [None]
  - DRUG EFFECT DECREASED [None]
  - INFLUENZA LIKE ILLNESS [None]
  - TREMOR [None]
  - WITHDRAWAL SYNDROME [None]
